FAERS Safety Report 6674139-4 (Version None)
Quarter: 2010Q2

REPORT INFORMATION
  Report Type: 
  Country: None (occurrence: None)
  Receive Date: 20100409
  Receipt Date: 20100406
  Transmission Date: 20101027
  Serious: Yes (Hospitalization)
  Sender: FDA-Public Use
  Company Number: US-ASTRAZENECA-2010SE15114

PATIENT
  Sex: Female

DRUGS (14)
  1. CRESTOR [Suspect]
     Route: 048
     Dates: start: 20100319, end: 20100401
  2. TRILIPIX [Suspect]
     Dates: start: 20100319
  3. REQUIP [Concomitant]
     Indication: RESTLESS LEGS SYNDROME
  4. WELLBUTRIN [Concomitant]
     Indication: DEPRESSION
  5. REMERON [Concomitant]
     Indication: DEPRESSION
  6. CETRIZINE [Concomitant]
     Indication: DEPRESSION
  7. NEURONTIN [Concomitant]
     Indication: NEUROPATHY PERIPHERAL
  8. FOLIC ACID [Concomitant]
     Indication: FOLATE DEFICIENCY
  9. PLAVIX [Concomitant]
     Indication: CARDIAC DISORDER
  10. TIGAN [Concomitant]
     Indication: NAUSEA
  11. ZANAFLEX [Concomitant]
     Indication: HERNIA
  12. OXYCODONE [Concomitant]
     Indication: PAIN
  13. ASPIRIN [Concomitant]
     Indication: CARDIAC DISORDER
  14. ZANTAC [Concomitant]
     Indication: ABDOMINAL DISCOMFORT

REACTIONS (10)
  - CHEST DISCOMFORT [None]
  - CONTUSION [None]
  - DYSPNOEA [None]
  - EPISTAXIS [None]
  - HAEMATOCHEZIA [None]
  - NAUSEA [None]
  - OROPHARYNGEAL PAIN [None]
  - PAIN [None]
  - PYREXIA [None]
  - VOMITING [None]
